FAERS Safety Report 14270800 (Version 1)
Quarter: 2017Q4

REPORT INFORMATION
  Report Type: Spontaneous
  Country: US (occurrence: US)
  Receive Date: 20171211
  Receipt Date: 20171211
  Transmission Date: 20180321
  Serious: Yes (Hospitalization, Other)
  Sender: FDA-Public Use
  Company Number: US-OTSUKA-2016_030438

PATIENT
  Sex: Female

DRUGS (2)
  1. ABILIFY [Suspect]
     Active Substance: ARIPIPRAZOLE
     Indication: MAJOR DEPRESSION
     Dosage: 1 DF, UNK
     Route: 065
     Dates: start: 2011, end: 20150310
  2. ABILIFY [Suspect]
     Active Substance: ARIPIPRAZOLE
     Indication: ANXIETY
     Dosage: UNK
     Route: 065

REACTIONS (10)
  - Trichotillomania [Recovered/Resolved]
  - Gambling disorder [Recovered/Resolved]
  - Obsessive-compulsive disorder [Recovered/Resolved]
  - Suicide attempt [Recovered/Resolved]
  - Eating disorder [Recovered/Resolved]
  - Excoriation [Unknown]
  - Suicidal ideation [Recovered/Resolved]
  - Emotional distress [Unknown]
  - Injury [Unknown]
  - Mental disorder [Unknown]
